FAERS Safety Report 15384836 (Version 1)
Quarter: 2018Q3

REPORT INFORMATION
  Report Type: Spontaneous
  Country: BR (occurrence: BR)
  Receive Date: 20180914
  Receipt Date: 20180914
  Transmission Date: 20181010
  Serious: Yes (Hospitalization)
  Sender: FDA-Public Use
  Company Number: BR-SA-2018SA249267

PATIENT
  Age: 8 Month
  Sex: Female
  Weight: 2.63 kg

DRUGS (2)
  1. APIDRA SOLOSTAR [Suspect]
     Active Substance: INSULIN GLULISINE
     Indication: GESTATIONAL DIABETES
  2. LANTUS SOLOSTAR [Suspect]
     Active Substance: INSULIN GLARGINE
     Indication: GESTATIONAL DIABETES

REACTIONS (2)
  - Fatigue [Unknown]
  - Foetal exposure during pregnancy [Unknown]
